FAERS Safety Report 8906118 (Version 2)
Quarter: 2012Q4

REPORT INFORMATION
  Report Type: Spontaneous
  Country: CA (occurrence: None)
  Receive Date: 20121102
  Receipt Date: 20121109
  Transmission Date: 20130627
  Serious: Yes (Other)
  Sender: FDA-Public Use
  Company Number: 2012033712

PATIENT
  Age: 40 Year
  Sex: Male

DRUGS (3)
  1. PRIVIGEN [Suspect]
     Indication: IMMUNODEFICIENCY
     Route: 042
     Dates: start: 20120913, end: 20120915
  2. BENADRYL [Concomitant]
  3. SOLU CORTEF [Concomitant]

REACTIONS (6)
  - Staphylococcal infection [None]
  - Blood pressure increased [None]
  - Confusional state [None]
  - Convulsion [None]
  - Encephalitis [None]
  - Radiculopathy [None]
